FAERS Safety Report 15531798 (Version 6)
Quarter: 2020Q1

REPORT INFORMATION
  Report Type: Spontaneous
  Country: US (occurrence: US)
  Receive Date: 20181019
  Receipt Date: 20200319
  Transmission Date: 20200409
  Serious: Yes (Other)
  Sender: FDA-Public Use
  Company Number: US-PFIZER INC-2018428472

PATIENT
  Age: 68 Year
  Sex: Female

DRUGS (1)
  1. XELJANZ XR [Suspect]
     Active Substance: TOFACITINIB CITRATE
     Indication: RHEUMATOID ARTHRITIS
     Dosage: 11 MG, UNKNOWN FREQUENCY

REACTIONS (6)
  - Dizziness [Unknown]
  - Systemic lupus erythematosus [Unknown]
  - Pain [Unknown]
  - Drug ineffective [Unknown]
  - Fall [Unknown]
  - Lower limb fracture [Unknown]
